FAERS Safety Report 8850660 (Version 13)
Quarter: 2021Q3

REPORT INFORMATION
  Report Type: Other
  Country: CA (occurrence: CA)
  Receive Date: 20121019
  Receipt Date: 20210908
  Transmission Date: 20211014
  Serious: Yes (Hospitalization, Other)
  Sender: FDA-Public Use
  Company Number: CA-ROCHE-1146625

PATIENT
  Age: 65 Year
  Sex: Female

DRUGS (12)
  1. ALVESCO [Concomitant]
     Active Substance: CICLESONIDE
     Indication: PRODUCT USED FOR UNKNOWN INDICATION
     Dosage: UNK
     Route: 065
  2. PREDNISONE. [Concomitant]
     Active Substance: PREDNISONE
     Indication: PRODUCT USED FOR UNKNOWN INDICATION
     Dosage: UNK
     Route: 065
  3. MORPHINE [Concomitant]
     Active Substance: MORPHINE
     Indication: BACK DISORDER
     Dosage: UNK, FOR FOUR YEARS, A PATCH FOR 60 HOURS
     Route: 065
  4. SPIRIVA [Concomitant]
     Active Substance: TIOTROPIUM BROMIDE MONOHYDRATE
     Indication: PRODUCT USED FOR UNKNOWN INDICATION
     Dosage: UNK
     Route: 065
  5. XOLAIR [Suspect]
     Active Substance: OMALIZUMAB
     Indication: ASTHMA
     Route: 058
     Dates: start: 20120712
  6. XOLAIR [Suspect]
     Active Substance: OMALIZUMAB
     Route: 058
     Dates: start: 20120913
  7. XOLAIR [Suspect]
     Active Substance: OMALIZUMAB
     Route: 058
  8. VENTOLIN [Concomitant]
     Active Substance: ALBUTEROL SULFATE
     Indication: PRODUCT USED FOR UNKNOWN INDICATION
     Dosage: UNK
     Route: 065
  9. XOLAIR [Suspect]
     Active Substance: OMALIZUMAB
     Route: 058
     Dates: start: 20120816
  10. SINGULAIR [Concomitant]
     Active Substance: MONTELUKAST SODIUM
     Indication: PRODUCT USED FOR UNKNOWN INDICATION
     Dosage: UNK
     Route: 065
  11. XOLAIR [Suspect]
     Active Substance: OMALIZUMAB
     Route: 058
     Dates: start: 20140312
  12. SEREVENT DISKUS [Concomitant]
     Active Substance: SALMETEROL XINAFOATE
     Indication: PRODUCT USED FOR UNKNOWN INDICATION
     Dosage: UNK
     Route: 065

REACTIONS (21)
  - Osteomyelitis [Unknown]
  - Abdominal pain [Unknown]
  - Fatigue [Unknown]
  - Blood pressure decreased [Unknown]
  - Pyrexia [Unknown]
  - Hip fracture [Recovering/Resolving]
  - Injection site warmth [Unknown]
  - Headache [Unknown]
  - Insomnia [Unknown]
  - Haemoglobin decreased [Unknown]
  - Fracture [Unknown]
  - Diarrhoea [Unknown]
  - Oedema peripheral [Unknown]
  - Wound [Unknown]
  - Vomiting [Unknown]
  - Pelvic fracture [Recovering/Resolving]
  - Wound infection [Unknown]
  - Localised infection [Not Recovered/Not Resolved]
  - Anaemia [Unknown]
  - Respiratory disorder [Unknown]
  - Heart rate increased [Unknown]

NARRATIVE: CASE EVENT DATE: 20120712
